FAERS Safety Report 8916117 (Version 1)
Quarter: 2012Q4

REPORT INFORMATION
  Report Type: 
  Country: US (occurrence: US)
  Receive Date: 20121120
  Receipt Date: 20121120
  Transmission Date: 20130627
  Serious: No
  Sender: FDA-Public Use
  Company Number: US-ASTRAZENECA-2012SE85348

PATIENT
  Age: 74 Year
  Sex: Female

DRUGS (9)
  1. NEXIUM [Suspect]
     Route: 048
  2. CRESTOR [Suspect]
     Route: 048
  3. ASPIRIN [Concomitant]
  4. VITAMIN C [Concomitant]
  5. VITAMINE E [Concomitant]
  6. VITAMINE D [Concomitant]
  7. FERROUS SULFATE [Concomitant]
  8. LEVOTHYROXINE SODIUM [Concomitant]
  9. AMLODIPINE BESY-BENAZEPRIL HCL [Concomitant]

REACTIONS (3)
  - Mean cell haemoglobin concentration increased [Unknown]
  - Very low density lipoprotein increased [Unknown]
  - Blood triglycerides increased [Unknown]
